FAERS Safety Report 4960361-1 (Version None)
Quarter: 2006Q1

REPORT INFORMATION
  Report Type: 
  Country: None (occurrence: None)
  Receive Date: 20060328
  Receipt Date: 20060316
  Transmission Date: 20060701
  Serious: Yes (Life-Threatening)
  Sender: FDA-Public Use
  Company Number: 219908

PATIENT
  Age: 72 Year
  Sex: Female

DRUGS (4)
  1. ACTIVASE [Suspect]
     Indication: ISCHAEMIC STROKE
     Dosage: 61.2 MG, INTRAVENOUS
     Route: 042
     Dates: start: 20051124
  2. CITICOLINE (CITICOLINE) [Suspect]
     Indication: ISCHAEMIC STROKE
     Dosage: 1 G, INTRAVENOUS
     Route: 042
     Dates: start: 20051124
  3. CLOPIDOGREL (CLOPIDOGREL,  BISULFATE) [Concomitant]
  4. ANTIHYPERTENSIVE NOS (ANTIHYPERTENSIVE NOS) [Concomitant]

REACTIONS (3)
  - ANAPHYLACTIC REACTION [None]
  - CEREBRAL HAEMORRHAGE [None]
  - RESPIRATORY FAILURE [None]
